FAERS Safety Report 25027625 (Version 1)
Quarter: 2025Q1

REPORT INFORMATION
  Report Type: Spontaneous
  Country: US (occurrence: US)
  Receive Date: 20250301
  Receipt Date: 20250301
  Transmission Date: 20250408
  Serious: No
  Sender: SANOFI AVENTIS
  Company Number: US-SA-2025SA058850

PATIENT
  Age: 2 Year
  Sex: Male
  Weight: 12.64 kg

DRUGS (1)
  1. DUPIXENT [Suspect]
     Active Substance: DUPILUMAB
     Indication: Dermatitis atopic
     Dosage: 200 MG, Q4W
     Route: 058
     Dates: start: 202410

REACTIONS (4)
  - Rash [Unknown]
  - Skin discolouration [Unknown]
  - Eye irritation [Unknown]
  - Ocular hyperaemia [Unknown]
